FAERS Safety Report 6699450-2 (Version None)
Quarter: 2010Q2

REPORT INFORMATION
  Report Type: 
  Country: None (occurrence: None)
  Receive Date: 20100426
  Receipt Date: 20100412
  Transmission Date: 20101027
  Serious: Yes (Hospitalization)
  Sender: FDA-Public Use
  Company Number: B0559101A

PATIENT
  Age: 67 Year
  Sex: Male

DRUGS (1)
  1. ACYCLOVIR [Suspect]
     Indication: HERPES ZOSTER
     Dosage: 800 MG / FIVE TIMES PER DAY /
     Dates: start: 20080701

REACTIONS (8)
  - APHASIA [None]
  - CEREBRAL ATROPHY [None]
  - ENCEPHALOPATHY [None]
  - HAEMODIALYSIS [None]
  - HYPERTENSION [None]
  - NEUROTOXICITY [None]
  - OVERDOSE [None]
  - PARESIS [None]
